FAERS Safety Report 25340045 (Version 3)
Quarter: 2025Q3

REPORT INFORMATION
  Report Type: Other
  Country: EU (occurrence: EU)
  Receive Date: 20250521
  Receipt Date: 20250714
  Transmission Date: 20251021
  Serious: Yes (Other)
  Sender: ZYDUS PHARM
  Company Number: None

PATIENT

DRUGS (2)
  1. ACETAMINOPHEN [Suspect]
     Active Substance: ACETAMINOPHEN
     Indication: Suicide attempt
     Route: 048
     Dates: start: 20250217, end: 20250218
  2. LORAZEPAM [Concomitant]
     Active Substance: LORAZEPAM
     Indication: Suicide attempt
     Route: 048
     Dates: start: 20250217, end: 20250218

REACTIONS (2)
  - Hepatic cytolysis [Recovering/Resolving]
  - Intentional overdose [Recovering/Resolving]

NARRATIVE: CASE EVENT DATE: 20250217
